FAERS Safety Report 5295829-4 (Version None)
Quarter: 2007Q2

REPORT INFORMATION
  Report Type: 
  Country: None (occurrence: None)
  Receive Date: 20070413
  Receipt Date: 20070402
  Transmission Date: 20071010
  Serious: Yes (Hospitalization)
  Sender: FDA-Public Use
  Company Number: HQWYE018209NOV06

PATIENT
  Age: 74 Year
  Sex: Male

DRUGS (5)
  1. INIPOMP [Suspect]
     Indication: PEPTIC ULCER
     Route: 048
     Dates: end: 20060401
  2. INIPOMP [Suspect]
     Indication: GASTROINTESTINAL HAEMORRHAGE
     Route: 048
     Dates: start: 20060401, end: 20060909
  3. LASIX [Concomitant]
     Dosage: ^DF^ UNSPECIFIED
     Route: 048
     Dates: start: 20060424
  4. TARDYFERON [Concomitant]
     Dosage: ^DF^ UNSPECIFIED
     Route: 048
     Dates: start: 20060601
  5. STABLON [Concomitant]
     Dosage: ^DF^ UNSPECIFIED
     Route: 048

REACTIONS (3)
  - AGRANULOCYTOSIS [None]
  - DRUG TOXICITY [None]
  - PYREXIA [None]
